FAERS Safety Report 21919271 (Version 1)
Quarter: 2023Q1

REPORT INFORMATION
  Report Type: Spontaneous
  Country: US (occurrence: US)
  Receive Date: 20230127
  Receipt Date: 20230127
  Transmission Date: 20230417
  Serious: Yes (Hospitalization, Other)
  Sender: FDA-Public Use
  Company Number: US-Accord-297391

PATIENT
  Age: 23 Year
  Sex: Female

DRUGS (8)
  1. DECITABINE [Suspect]
     Active Substance: DECITABINE
     Indication: Chloroma
     Dosage: RECEIVED 2 CYCLES
  2. VENETOCLAX [Suspect]
     Active Substance: VENETOCLAX
     Indication: Chloroma
     Dosage: RECEIVED 2 CYCLES
  3. MYCOPHENOLATE MOFETIL [Concomitant]
     Active Substance: MYCOPHENOLATE MOFETIL
     Indication: Immunosuppressant drug therapy
  4. TACROLIMUS [Concomitant]
     Active Substance: TACROLIMUS
     Indication: Immunosuppressant drug therapy
  5. PREDNISONE [Concomitant]
     Active Substance: PREDNISONE
     Indication: Immunosuppressant drug therapy
  6. EVEROLIMUS [Concomitant]
     Active Substance: EVEROLIMUS
     Indication: Immunosuppressant drug therapy
  7. RITUXIMAB [Concomitant]
     Active Substance: RITUXIMAB
     Indication: Glomerulonephritis membranoproliferative
     Dosage: AT THE AGE OF 20, 18 MONTHS, ANOTHER DOSE, CUMULATIVE DOSE: 2 TOTAL
  8. RITUXIMAB [Concomitant]
     Active Substance: RITUXIMAB
     Indication: Glomerulonephritis membranoproliferative
     Dosage: ONE DOSE AT THE AGE OF 19, CUMULATIVE DOSE: 2 TOTAL

REACTIONS (2)
  - Epstein-Barr viraemia [Unknown]
  - Off label use [Unknown]
